FAERS Safety Report 9897989 (Version 2)
Quarter: 2014Q1

REPORT INFORMATION
  Report Type: Spontaneous
  Country: US (occurrence: US)
  Receive Date: 20140214
  Receipt Date: 20140324
  Transmission Date: 20141002
  Serious: Yes (Other)
  Sender: FDA-Public Use
  Company Number: US-PFIZER INC-2014041555

PATIENT
  Age: 77 Year
  Sex: Female

DRUGS (9)
  1. SUTENT [Suspect]
     Indication: RENAL CANCER
     Dosage: UNK
     Dates: start: 20131118
  2. AMLODIPINE BESY-BENAZEPRIL HCL [Concomitant]
     Dosage: UNK
  3. ASPIRIN EC LO-DOSE [Concomitant]
     Dosage: UNK
  4. CARVEDILOL [Concomitant]
     Dosage: UNK
  5. FISH OIL [Concomitant]
     Dosage: UNK
  6. FUROSEMIDE [Concomitant]
     Dosage: UNK
  7. GLIPIZIDE [Concomitant]
     Dosage: UNK
  8. LOSARTAN POTASSIUM [Concomitant]
     Dosage: UNK
  9. VITAMIN B COMPLEX [Concomitant]
     Dosage: UNK

REACTIONS (3)
  - Abasia [Unknown]
  - Syncope [Unknown]
  - Asthenia [Unknown]
